FAERS Safety Report 10311360 (Version 4)
Quarter: 2015Q1

REPORT INFORMATION
  Report Type: Spontaneous
  Country: IT (occurrence: IT)
  Receive Date: 20140717
  Receipt Date: 20150128
  Transmission Date: 20150720
  Serious: Yes (Other)
  Sender: FDA-Public Use
  Company Number: IT-TEVA-493557ISR

PATIENT
  Age: 27 Year
  Sex: Female
  Weight: 57.5 kg

DRUGS (5)
  1. RATIOGRASTIM 30 MIU [Suspect]
     Active Substance: FILGRASTIM
     Dosage: TEVAGRASTIM 30MIU,1 VIAL DAILY
     Dates: start: 20140905, end: 20140906
  2. RATIOGRASTIM 30 MIU [Suspect]
     Active Substance: FILGRASTIM
     Indication: APLASIA
     Dosage: TEVAGRASTIM 30MU,2 VIALS DAILY
     Dates: start: 20140517, end: 20140527
  3. RATIOGRASTIM 30 MIU [Suspect]
     Active Substance: FILGRASTIM
     Dosage: 1 DOSAGE FORMS DAILY; 1 VIAL
     Route: 042
     Dates: start: 20140701, end: 20140701
  4. LEDERFOLIN 25 MG [Concomitant]
     Indication: FOLATE DEFICIENCY
     Dosage: 4 DOSAGE FORMS DAILY;
     Route: 042
     Dates: start: 20140626
  5. TOBRADEX 0.3%+0.1% [Concomitant]
     Indication: PROPHYLAXIS
     Dosage: 3 GTT DAILY;
     Route: 047
     Dates: start: 20140628

REACTIONS (4)
  - Dyspnoea [Unknown]
  - Angioedema [Unknown]
  - Hypotension [Recovered/Resolved]
  - Laryngeal oedema [Recovered/Resolved]

NARRATIVE: CASE EVENT DATE: 20140701
